FAERS Safety Report 6822355-0 (Version None)
Quarter: 2010Q3

REPORT INFORMATION
  Report Type: 
  Country: None (occurrence: None)
  Receive Date: 20100708
  Receipt Date: 20100624
  Transmission Date: 20110219
  Serious: Yes (Other)
  Sender: FDA-Public Use
  Company Number: PHHY2010FR25722

PATIENT
  Sex: Female
  Weight: 50 kg

DRUGS (4)
  1. ACLASTA [Suspect]
     Indication: OSTEOPOROSIS
     Dosage: 5 MG
     Route: 042
     Dates: start: 20091215
  2. TAREG [Concomitant]
     Indication: HYPERTENSION
     Dosage: 1 DF DAILY
  3. FENOFIBRATE [Concomitant]
     Indication: DYSLIPIDAEMIA
     Dosage: 1 DF DAILY
  4. ASPEGIC 1000 [Concomitant]
     Indication: CEREBROVASCULAR ACCIDENT
     Dosage: 1 DF DAILY

REACTIONS (19)
  - ACCIDENT [None]
  - ASTHENIA [None]
  - BACK PAIN [None]
  - CONFUSIONAL STATE [None]
  - DECREASED APPETITE [None]
  - DEHYDRATION [None]
  - DYSPHAGIA [None]
  - FATIGUE [None]
  - FOOD AVERSION [None]
  - GENERAL PHYSICAL HEALTH DETERIORATION [None]
  - HYPERHIDROSIS [None]
  - HYPOSIDERAEMIA [None]
  - MALAISE [None]
  - MUSCLE FATIGUE [None]
  - OSTEOARTHRITIS [None]
  - RED BLOOD CELL SEDIMENTATION RATE INCREASED [None]
  - SOPOR [None]
  - SPINAL FRACTURE [None]
  - WEIGHT DECREASED [None]
